FAERS Safety Report 7214273-3 (Version None)
Quarter: 2011Q1

REPORT INFORMATION
  Report Type: 
  Country: None (occurrence: None)
  Receive Date: 20110107
  Receipt Date: 20101228
  Transmission Date: 20110831
  Serious: Yes (Hospitalization, Other)
  Sender: FDA-Public Use
  Company Number: DE-PFIZER INC-DE-WYE-G05148809

PATIENT
  Age: 73 Year
  Sex: Female

DRUGS (3)
  1. LYRICA [Suspect]
     Indication: DEPRESSION
     Dosage: 100 MG, 4X PER DAY FROM AN UKNOWN DATE, REDUCED TO 50 MG 4X PER DAY FROM 12/2009
     Route: 048
  2. LYRICA [Suspect]
     Dosage: 50 MG, 4 X PER DAY FROM DEC2009
     Route: 048
  3. VENLAFAXINE HCL [Suspect]
     Indication: DEPRESSION
     Dosage: 150 MG, PER DAY FROM AN UNKNOWN DATE UNTIL 12/2009
     Route: 048

REACTIONS (7)
  - DRUG INTERACTION [None]
  - FATIGUE [None]
  - HAEMATOMA [None]
  - THROMBOSIS [None]
  - FALL [None]
  - PULMONARY EMBOLISM [None]
  - INTENTIONAL DRUG MISUSE [None]
